FAERS Safety Report 5494420-4 (Version None)
Quarter: 2007Q4

REPORT INFORMATION
  Report Type: 
  Country: None (occurrence: None)
  Receive Date: 20071022
  Receipt Date: 20071022
  Transmission Date: 20080405
  Serious: Yes (Hospitalization)
  Sender: FDA-Public Use
  Company Number: None

PATIENT
  Sex: Male
  Weight: 79.3795 kg

DRUGS (7)
  1. THALOMID [Suspect]
     Indication: RENAL CELL CARCINOMA STAGE IV
     Dosage: 100 MG QHS FOR 28 DAYS PO
     Route: 048
     Dates: start: 20070208, end: 20071012
  2. TEMODAR [Suspect]
     Indication: RENAL CELL CARCINOMA STAGE IV
     Dosage: 100 MG QHS FOR 21 DAYS PO
     Route: 048
     Dates: start: 20070215, end: 20071012
  3. XELODA [Concomitant]
  4. TOPROL-XL [Concomitant]
  5. COUMADIN [Concomitant]
  6. MORPHINE [Concomitant]
  7. PERCOCET [Concomitant]

REACTIONS (2)
  - INCISIONAL HERNIA [None]
  - SMALL INTESTINAL OBSTRUCTION [None]
